FAERS Safety Report 4526161-1 (Version None)
Quarter: 2004Q4

REPORT INFORMATION
  Report Type: 
  Country: None (occurrence: None)
  Receive Date: 20041213
  Receipt Date: 20041213
  Transmission Date: 20050328
  Serious: No
  Sender: FDA-Public Use
  Company Number: None

PATIENT
  Age: 85 Year
  Sex: Female
  Weight: 63.5036 kg

DRUGS (2)
  1. LEXAPRO [Suspect]
     Indication: DEPRESSION
     Dosage: 10 MG PO QD
     Route: 048
  2. GUAIFENESIN/DEXTROMETHORPHAN [Suspect]
     Indication: COUGH
     Dosage: 600MG/30MG PO BID
     Route: 048
     Dates: start: 20040209

REACTIONS (10)
  - COMA [None]
  - DROOLING [None]
  - DYSKINESIA [None]
  - FALL [None]
  - MASKED FACIES [None]
  - MYDRIASIS [None]
  - PYREXIA [None]
  - REFUSAL OF TREATMENT BY PATIENT [None]
  - RESPIRATORY DISORDER [None]
  - URINARY INCONTINENCE [None]
